FAERS Safety Report 12809496 (Version 1)
Quarter: 2016Q4

REPORT INFORMATION
  Report Type: Spontaneous
  Country: FR (occurrence: FR)
  Receive Date: 20161005
  Receipt Date: 20161005
  Transmission Date: 20170207
  Serious: Yes (Hospitalization)
  Sender: FDA-Public Use
  Company Number: FR-BAXTER-2016BAX049464

PATIENT
  Sex: Female

DRUGS (6)
  1. FUROSEMIDE. [Concomitant]
     Active Substance: FUROSEMIDE
     Indication: PRODUCT USED FOR UNKNOWN INDICATION
     Dosage: ONE TAB DAILY IN THE MORNING; LONG TERM TREATMENT
     Route: 048
  2. DIFFU K [Concomitant]
     Active Substance: POTASSIUM CHLORIDE
     Indication: PRODUCT USED FOR UNKNOWN INDICATION
     Dosage: ONE CAP IN THE MORNING AND ONE IN THE EVENING; LONG TERM TREATMENT
     Route: 048
  3. VP16 [Suspect]
     Active Substance: ETOPOSIDE
     Indication: PRODUCT USED FOR UNKNOWN INDICATION
     Dosage: 4TH COURSE
     Route: 065
     Dates: start: 20151124
  4. BISOPROLOL [Concomitant]
     Active Substance: BISOPROLOL
     Indication: PRODUCT USED FOR UNKNOWN INDICATION
     Dosage: ONE TAB DAILY IN THE MORNING; LONG TERM TREATMENT
     Route: 048
  5. SIMVASTATINE [Concomitant]
     Active Substance: SIMVASTATIN
     Indication: PRODUCT USED FOR UNKNOWN INDICATION
     Dosage: UNIT DOSE: 10 KIU/10 MG; ONE DAILY IN THE EVENING; LONG TERM TREATMENT
     Route: 048
  6. HOLOXAN 2000 MG, POUDRE POUR USAGE PARENT?RAL [Suspect]
     Active Substance: IFOSFAMIDE
     Indication: HIGH GRADE B-CELL LYMPHOMA BURKITT-LIKE LYMPHOMA STAGE IV
     Dosage: 4TH COURSE
     Route: 042
     Dates: start: 20151124

REACTIONS (3)
  - Fall [Unknown]
  - Sepsis [Recovered/Resolved]
  - Aplasia [Unknown]
